FAERS Safety Report 9204293 (Version 1)
Quarter: 2013Q1

REPORT INFORMATION
  Report Type: Spontaneous
  Country: US (occurrence: None)
  Receive Date: 20120709
  Receipt Date: 20120709
  Transmission Date: 20140127
  Serious: No
  Sender: FDA-Public Use
  Company Number: 2012HGS-003382

PATIENT
  Age: 52 Year
  Sex: Female
  Weight: 108.86 kg

DRUGS (13)
  1. BENLYSTA [Suspect]
     Dosage: 1 IN 28 D
     Route: 041
     Dates: start: 20120214
  2. VITAMIN E (TOCOPHEROL) (TOCOPHEROL) [Concomitant]
  3. BIOTIN (BIOTIN) (BIOTIN) [Concomitant]
  4. PREDNISONE (PREDNISONE) (PREDNISONE) [Concomitant]
  5. PLAQUENIL (HYDROCHLOROQUINE) (HYDROCHLOROQUINE) (HYDROCHLOROQUINE) [Concomitant]
  6. METHOTREXATE (METHOTREXATE) (METHOTREXATE) [Concomitant]
  7. FOLIC ACID ( FOLIC ACID) (FOLIC ACID) [Concomitant]
  8. PROTONIX (PANTOPRAZOLE SODIUM SESQUIHYDRATE) (PANTOPRAZOLE SODUIM SESQUUIHYDRATE) [Concomitant]
  9. PHENEGREN (PROMETHAZINE) (PROMETHAZINE) [Concomitant]
  10. ZOFRAN (ODANSETRON) (ODANSETRON) [Concomitant]
  11. OXYCONTIN (OXYCODONE HYDROCHLORIDE) (OXYCODONE HYDROCHLORIDE) [Concomitant]
  12. LORTAB (VICODIN) (PARACETAMOL, HYDROCODONE BITARTRATE) [Concomitant]
  13. POTASSIUM (POTASSIUM) (POTASSIUM) [Concomitant]

REACTIONS (4)
  - Blood pressure increased [None]
  - Headache [None]
  - Nausea [None]
  - Vomiting [None]
